FAERS Safety Report 19641554 (Version 2)
Quarter: 2021Q4

REPORT INFORMATION
  Report Type: Spontaneous
  Country: US (occurrence: US)
  Receive Date: 20210731
  Receipt Date: 20211011
  Transmission Date: 20220304
  Serious: Yes (Hospitalization)
  Sender: FDA-Public Use
  Company Number: US-DRREDDYS-SPO/USA/21/0138279

PATIENT
  Age: 15 Year
  Sex: Male

DRUGS (4)
  1. DEXAMETHASONE SODIUM PHOSPHATE [Suspect]
     Active Substance: DEXAMETHASONE SODIUM PHOSPHATE
     Indication: Gout
  2. PREDNISONE [Suspect]
     Active Substance: PREDNISONE
     Indication: Bronchial hyperreactivity
     Dosage: DOSE PACK
  3. IBUPROFEN [Concomitant]
     Active Substance: IBUPROFEN
     Indication: Gout
  4. AMOXICILLIN\CLAVULANIC ACID [Concomitant]
     Active Substance: AMOXICILLIN\CLAVULANIC ACID
     Indication: Bacterial infection

REACTIONS (6)
  - Osteomyelitis blastomyces [Recovered/Resolved]
  - Blastomycosis [Recovered/Resolved]
  - Disseminated blastomycosis [Recovered/Resolved]
  - Extremity necrosis [Recovered/Resolved]
  - Subperiosteal abscess [Recovered/Resolved]
  - Arthritis bacterial [Recovered/Resolved]
